FAERS Safety Report 9798061 (Version 1)
Quarter: 2014Q1

REPORT INFORMATION
  Report Type: Spontaneous
  Country: FR (occurrence: FR)
  Receive Date: 20140106
  Receipt Date: 20140106
  Transmission Date: 20141002
  Serious: Yes (Life-Threatening, Hospitalization)
  Sender: FDA-Public Use
  Company Number: FR-SA-2013SA136065

PATIENT
  Age: 53 Year
  Sex: Male

DRUGS (2)
  1. DANATROL [Suspect]
     Indication: HEREDITARY ANGIOEDEMA
     Dosage: 2 TO 3 CAPSULES PER DAY
     Route: 048
     Dates: start: 1977, end: 20131203
  2. BETA BLOCKING AGENTS [Concomitant]
     Indication: HYPERTENSION

REACTIONS (4)
  - Portal fibrosis [Not Recovered/Not Resolved]
  - Hepatic cancer [Not Recovered/Not Resolved]
  - Chronic hepatitis [Not Recovered/Not Resolved]
  - Hepatic cancer recurrent [Not Recovered/Not Resolved]
